FAERS Safety Report 18665961 (Version 1)
Quarter: 2020Q4

REPORT INFORMATION
  Report Type: Spontaneous
  Country: US (occurrence: US)
  Receive Date: 20201226
  Receipt Date: 20201226
  Transmission Date: 20210114
  Serious: Yes (Other)
  Sender: FDA-Public Use
  Company Number: US-GLAXOSMITHKLINE-US2020GSK250597

PATIENT
  Age: 68 Year
  Sex: Female

DRUGS (5)
  1. ACLIDINIUM BROMIDE INHALER [Suspect]
     Active Substance: ACLIDINIUM BROMIDE
     Indication: PRODUCT USED FOR UNKNOWN INDICATION
     Dosage: UNK
     Route: 055
  2. PREDNISONE. [Suspect]
     Active Substance: PREDNISONE
     Indication: PRODUCT USED FOR UNKNOWN INDICATION
     Dosage: UNK
  3. ALBUTEROL SULFATE + IPRATROPIUM NEBULIZER [Suspect]
     Active Substance: ALBUTEROL SULFATE\IPRATROPIUM BROMIDE
     Indication: PRODUCT USED FOR UNKNOWN INDICATION
     Dosage: UNK
     Route: 055
  4. FLUTICASONE. [Suspect]
     Active Substance: FLUTICASONE
     Indication: PRODUCT USED FOR UNKNOWN INDICATION
     Dosage: UNK
     Route: 055
  5. BUDESONIDE-FORMOTEROL [Suspect]
     Active Substance: BUDESONIDE\FORMOTEROL
     Indication: PRODUCT USED FOR UNKNOWN INDICATION
     Dosage: UNK
     Route: 055

REACTIONS (12)
  - Pulmonary mycosis [Recovered/Resolved]
  - Immunosuppression [Unknown]
  - Rales [Recovered/Resolved]
  - Pyrexia [Recovered/Resolved]
  - Drug ineffective [Unknown]
  - Night sweats [Recovered/Resolved]
  - Wheezing [Recovered/Resolved]
  - Fungal test positive [Recovered/Resolved]
  - Dyspnoea [Recovered/Resolved]
  - Purulent discharge [Recovered/Resolved]
  - Bronchoalveolar lavage abnormal [Unknown]
  - Lung opacity [Unknown]
